FAERS Safety Report 17599603 (Version 6)
Quarter: 2022Q4

REPORT INFORMATION
  Report Type: Report from Study
  Country: US (occurrence: US)
  Receive Date: 20200330
  Receipt Date: 20221023
  Transmission Date: 20230112
  Serious: No
  Sender: FDA-Public Use
  Company Number: None

PATIENT
  Age: 3 Year
  Sex: Male

DRUGS (3)
  1. ILARIS [Suspect]
     Active Substance: CANAKINUMAB
     Indication: Vasculitis necrotising
     Dosage: 31.5 MG (EVERY 4 WEEKS)
     Route: 058
     Dates: start: 20190823
  2. ILARIS [Suspect]
     Active Substance: CANAKINUMAB
     Indication: Cryopyrin associated periodic syndrome
     Dosage: 45 MG (EVERY 4 WEEKS)
     Route: 065
     Dates: start: 20190823
  3. ILARIS [Suspect]
     Active Substance: CANAKINUMAB
     Dosage: 52.5 MG, Q4W
     Route: 058
     Dates: start: 20191022

REACTIONS (7)
  - Pyrexia [Recovering/Resolving]
  - Cough [Recovering/Resolving]
  - Exposure to SARS-CoV-2 [Unknown]
  - Illness [Unknown]
  - Product use in unapproved indication [Unknown]
  - Inappropriate schedule of product administration [Unknown]
  - Incorrect dose administered [Unknown]

NARRATIVE: CASE EVENT DATE: 20200303
